FAERS Safety Report 7144672-X (Version None)
Quarter: 2010Q4

REPORT INFORMATION
  Report Type: 
  Country: None (occurrence: None)
  Receive Date: 20101119
  Receipt Date: 20100107
  Transmission Date: 20110411
  Serious: Yes (Disabling)
  Sender: FDA-Public Use
  Company Number: UTC-000797

PATIENT
  Age: 59 Year
  Sex: Female
  Weight: 106 kg

DRUGS (11)
  1. TYVASO [Suspect]
     Indication: PULMONARY ARTERIAL HYPERTENSION
     Dosage: (96 MCG, 1 D), INHALATION
     Route: 055
     Dates: start: 20091115, end: 20100114
  2. LASIX [Concomitant]
  3. METOLAZONE [Concomitant]
  4. OXYGEN (OXYGEN) [Concomitant]
  5. WARFARIN (WARFARIN) [Concomitant]
  6. DIGOXIN [Concomitant]
  7. LISINOPRIL [Concomitant]
  8. ISORDIL [Concomitant]
  9. HYDRALAZINE HCL [Concomitant]
  10. METOPROLOL SUCCINATE [Concomitant]
  11. AMLODIPINE [Concomitant]

REACTIONS (2)
  - COUGH [None]
  - DRUG INEFFECTIVE [None]
